FAERS Safety Report 12326105 (Version 1)
Quarter: 2016Q2

REPORT INFORMATION
  Report Type: Spontaneous
  Country: US (occurrence: None)
  Receive Date: 20160502
  Receipt Date: 20160502
  Transmission Date: 20160815
  Serious: Yes (Other)
  Sender: FDA-Public Use
  Company Number: None

PATIENT
  Age: 47 Year
  Sex: Female
  Weight: 99.79 kg

DRUGS (3)
  1. FLONASE [Suspect]
     Active Substance: FLUTICASONE PROPIONATE
     Indication: SEASONAL ALLERGY
     Dosage: 60 SPRAY(S) ONCE A DAY INHALATION
     Route: 055
     Dates: start: 20160410, end: 20160429
  2. COMPOUND THYROID [Concomitant]
  3. MELATONIN [Concomitant]
     Active Substance: MELATONIN

REACTIONS (2)
  - Anxiety [None]
  - Insomnia [None]

NARRATIVE: CASE EVENT DATE: 20160426
